FAERS Safety Report 16463398 (Version 1)
Quarter: 2019Q2

REPORT INFORMATION
  Report Type: Spontaneous
  Country: US (occurrence: US)
  Receive Date: 20190513
  Receipt Date: 20190513
  Transmission Date: 20190711
  Serious: No
  Sender: FDA-Public Use
  Company Number: None

PATIENT
  Age: 37 Year
  Sex: Female

DRUGS (1)
  1. STIVARGA [Suspect]
     Active Substance: REGORAFENIB
     Indication: OSTEOSARCOMA
     Route: 048
     Dates: start: 20190315

REACTIONS (3)
  - Hair colour changes [None]
  - Rash [None]
  - Madarosis [None]

NARRATIVE: CASE EVENT DATE: 20190419
